FAERS Safety Report 25838465 (Version 1)
Quarter: 2025Q3

REPORT INFORMATION
  Report Type: Spontaneous
  Country: JP (occurrence: JP)
  Receive Date: 20250923
  Receipt Date: 20250923
  Transmission Date: 20251020
  Serious: Yes (Hospitalization, Other)
  Sender: TAKEDA
  Company Number: JP-TAKEDA-2025TJP009391

PATIENT
  Age: 15 Year
  Sex: Male

DRUGS (2)
  1. VYVANSE [Suspect]
     Active Substance: LISDEXAMFETAMINE DIMESYLATE
     Indication: Attention deficit hyperactivity disorder
  2. INTUNIV [Concomitant]
     Active Substance: GUANFACINE HYDROCHLORIDE

REACTIONS (3)
  - Attention deficit hyperactivity disorder [Unknown]
  - Autism spectrum disorder [Unknown]
  - Oppositional defiant disorder [Unknown]
